FAERS Safety Report 23072297 (Version 2)
Quarter: 2023Q4

REPORT INFORMATION
  Report Type: Spontaneous
  Country: JP (occurrence: JP)
  Receive Date: 20231017
  Receipt Date: 20231030
  Transmission Date: 20240110
  Serious: Yes (Other)
  Sender: FDA-Public Use
  Company Number: JP-KYOWAKIRIN-2023KK014769

PATIENT
  Age: 14 Year
  Sex: Male

DRUGS (3)
  1. FILGRASTIM [Suspect]
     Active Substance: FILGRASTIM
     Indication: Aplastic anaemia
     Dosage: 600 MICROGRAM/ME2
     Route: 042
     Dates: start: 20201014, end: 20201029
  2. EQUINE THYMOCYTE IMMUNE GLOBULIN [Concomitant]
     Active Substance: EQUINE THYMOCYTE IMMUNE GLOBULIN
     Indication: Aplastic anaemia
     Dosage: 40 MILLIGRAM/KILOGRAM, QD
     Route: 042
     Dates: start: 20201013, end: 20201016
  3. CYCLOSPORINE [Concomitant]
     Active Substance: CYCLOSPORINE
     Indication: Aplastic anaemia
     Dosage: UNK, BID
     Route: 048
     Dates: start: 20201014, end: 20220718

REACTIONS (4)
  - Cytomegalovirus viraemia [Recovering/Resolving]
  - Feeling abnormal [Recovered/Resolved]
  - Abdominal pain [Recovered/Resolved]
  - Infusion site discharge [Recovered/Resolved]

NARRATIVE: CASE EVENT DATE: 20201014
